FAERS Safety Report 19467422 (Version 2)
Quarter: 2024Q4

REPORT INFORMATION
  Report Type: Spontaneous
  Country: IT (occurrence: IT)
  Receive Date: 20210628
  Receipt Date: 20241011
  Transmission Date: 20250115
  Serious: Yes (Other)
  Sender: MERCK
  Company Number: IT-CELLTRION HEALTHCARE HUNGARY KFT-2021IT008027

PATIENT
  Age: 69 Year
  Sex: Female

DRUGS (14)
  1. DAPTOMYCIN [Suspect]
     Active Substance: DAPTOMYCIN
     Indication: Immunochemotherapy
     Dosage: UNK
  2. DAPTOMYCIN [Suspect]
     Active Substance: DAPTOMYCIN
     Indication: Staphylococcal bacteraemia
  3. DAPTOMYCIN [Suspect]
     Active Substance: DAPTOMYCIN
     Indication: Antibiotic therapy
  4. VANCOMYCIN HYDROCHLORIDE [Suspect]
     Active Substance: VANCOMYCIN HYDROCHLORIDE
     Indication: Staphylococcal infection
     Dosage: UNK
  5. RITUXIMAB [Suspect]
     Active Substance: RITUXIMAB
     Indication: Antibiotic therapy
     Dosage: UNK, CONCENTRATE FOR SOLUTION FOR INFUSION
  6. RITUXIMAB [Suspect]
     Active Substance: RITUXIMAB
     Indication: Immunochemotherapy
  7. RITUXIMAB [Suspect]
     Active Substance: RITUXIMAB
     Indication: Staphylococcal bacteraemia
  8. RITUXIMAB [Suspect]
     Active Substance: RITUXIMAB
     Indication: Immunosuppressant drug therapy
  9. MEROPENEM [Suspect]
     Active Substance: MEROPENEM
     Indication: Antibiotic therapy
  10. MEROPENEM [Suspect]
     Active Substance: MEROPENEM
     Indication: Immunochemotherapy
  11. MEROPENEM [Suspect]
     Active Substance: MEROPENEM
     Indication: Staphylococcal bacteraemia
  12. VANCOMYCIN [Suspect]
     Active Substance: VANCOMYCIN
     Indication: Immunochemotherapy
  13. VANCOMYCIN [Suspect]
     Active Substance: VANCOMYCIN
     Indication: Antibiotic therapy
  14. VANCOMYCIN [Suspect]
     Active Substance: VANCOMYCIN
     Indication: Staphylococcal bacteraemia

REACTIONS (4)
  - Staphylococcal bacteraemia [Unknown]
  - Bacteraemia [Unknown]
  - Therapeutic product effect incomplete [Unknown]
  - Off label use [Unknown]
